FAERS Safety Report 4726870-5 (Version None)
Quarter: 2005Q3

REPORT INFORMATION
  Report Type: 
  Country: None (occurrence: None)
  Receive Date: 20050726
  Receipt Date: 20050711
  Transmission Date: 20060218
  Serious: Yes (Death, Hospitalization)
  Sender: FDA-Public Use
  Company Number: WAES 0507USA01652

PATIENT
  Age: 81 Year
  Sex: Male

DRUGS (4)
  1. FOSAMAX [Suspect]
     Indication: OSTEOPOROSIS
     Dosage: 5 MG DAILY; PO
     Route: 048
     Dates: start: 20040525, end: 20040615
  2. ELCITONIN [Concomitant]
  3. ONEALFA [Concomitant]
  4. VOLTAREN [Concomitant]

REACTIONS (3)
  - ABDOMINAL PAIN UPPER [None]
  - LYMPHOMA [None]
  - PYREXIA [None]
